FAERS Safety Report 13571863 (Version 2)
Quarter: 2017Q3

REPORT INFORMATION
  Report Type: Spontaneous
  Country: JP (occurrence: JP)
  Receive Date: 20170523
  Receipt Date: 20170810
  Transmission Date: 20171127
  Serious: Yes (Death, Life-Threatening, Hospitalization, Other)
  Sender: FDA-Public Use
  Company Number: JP-ELI_LILLY_AND_COMPANY-JP201704009751

PATIENT
  Age: 55 Year
  Sex: Female

DRUGS (7)
  1. 5-FU                               /00098801/ [Concomitant]
     Active Substance: FLUOROURACIL
     Dosage: 3000 MG, UNK
     Route: 041
     Dates: start: 20170316, end: 20170406
  2. LEVOFOLINATE                       /06682103/ [Concomitant]
     Active Substance: LEVOLEUCOVORIN CALCIUM
     Indication: APPENDIX CANCER
     Dosage: UNK
     Dates: start: 20170316, end: 20170406
  3. 5-FU                               /00098801/ [Concomitant]
     Active Substance: FLUOROURACIL
     Indication: APPENDIX CANCER
     Dosage: 475 MG, UNK
     Route: 041
     Dates: start: 20170316, end: 20170406
  4. CYRAMZA [Suspect]
     Active Substance: RAMUCIRUMAB
     Indication: APPENDIX CANCER
     Dosage: 400 MG, UNK
     Route: 041
     Dates: start: 20170316, end: 20170406
  5. DECADRON                           /00016002/ [Suspect]
     Active Substance: DEXAMETHASONE
     Indication: MALAISE
  6. IRINOTECAN [Concomitant]
     Active Substance: IRINOTECAN
     Indication: APPENDIX CANCER
     Dosage: 185 MG, UNK
     Route: 041
     Dates: start: 20170316, end: 20170406
  7. DECADRON                           /00016002/ [Suspect]
     Active Substance: DEXAMETHASONE
     Indication: DECREASED APPETITE
     Dosage: UNK
     Route: 041
     Dates: start: 20170406, end: 20170414

REACTIONS (3)
  - Malignant neoplasm progression [Unknown]
  - Diverticular perforation [Not Recovered/Not Resolved]
  - Peritonitis [Fatal]

NARRATIVE: CASE EVENT DATE: 20170414
